FAERS Safety Report 17965981 (Version 3)
Quarter: 2020Q4

REPORT INFORMATION
  Report Type: Spontaneous
  Country: GB (occurrence: GB)
  Receive Date: 20200701
  Receipt Date: 20201017
  Transmission Date: 20210113
  Serious: Yes (Life-Threatening, Hospitalization, Other)
  Sender: FDA-Public Use
  Company Number: GB-AUROBINDO-AUR-APL-2011-01327

PATIENT
  Age: 50 Year
  Sex: Female

DRUGS (5)
  1. PARACETAMOL [Suspect]
     Active Substance: ACETAMINOPHEN
     Indication: SEPSIS
     Dosage: 4 GRAM, ONCE A DAY
     Route: 065
  2. PHENYTOIN. [Interacting]
     Active Substance: PHENYTOIN
     Indication: EPILEPSY
     Dosage: UNK
     Route: 065
  3. FLUCLOXACILLIN [Interacting]
     Active Substance: FLUCLOXACILLIN
     Indication: SEPSIS
     Dosage: 8 GRAM, ONCE A DAY
     Route: 042
  4. CARBAMAZEPINE. [Interacting]
     Active Substance: CARBAMAZEPINE
     Indication: EPILEPSY
     Dosage: UNK
     Route: 065
  5. PHENOBARBITAL. [Interacting]
     Active Substance: PHENOBARBITAL
     Indication: EPILEPSY
     Dosage: UNK
     Route: 065

REACTIONS (8)
  - Depressed level of consciousness [Recovered/Resolved]
  - Hypotension [Recovered/Resolved]
  - Sepsis [Recovered/Resolved]
  - Tachycardia [Recovered/Resolved]
  - Metabolic acidosis [Recovered/Resolved]
  - Tachypnoea [Recovered/Resolved]
  - Pyroglutamate increased [Recovered/Resolved]
  - Drug interaction [Recovered/Resolved]
